FAERS Safety Report 4781769-3 (Version None)
Quarter: 2005Q3

REPORT INFORMATION
  Report Type: 
  Country: None (occurrence: None)
  Receive Date: 20050927
  Receipt Date: 20050923
  Transmission Date: 20060218
  Serious: Yes (Disabling)
  Sender: FDA-Public Use
  Company Number: 200511387BWH

PATIENT
  Age: 25 Year
  Sex: Male

DRUGS (1)
  1. AVELOX [Suspect]
     Indication: PHARYNGOLARYNGEAL PAIN
     Dosage: ORAL
     Route: 048
     Dates: start: 20050701

REACTIONS (10)
  - ARTHRALGIA [None]
  - DIFFICULTY IN WALKING [None]
  - DYSPHAGIA [None]
  - FEELING ABNORMAL [None]
  - GAIT DISTURBANCE [None]
  - JOINT STIFFNESS [None]
  - JOINT SWELLING [None]
  - NASOPHARYNGEAL DISORDER [None]
  - OEDEMA PERIPHERAL [None]
  - PAIN IN EXTREMITY [None]
